FAERS Safety Report 7015602-6 (Version None)
Quarter: 2010Q3

REPORT INFORMATION
  Report Type: 
  Country: None (occurrence: None)
  Receive Date: 20100927
  Receipt Date: 20100915
  Transmission Date: 20110219
  Serious: Yes (Hospitalization)
  Sender: FDA-Public Use
  Company Number: CH-MERCK-1009USA03325

PATIENT
  Age: 47 Year
  Sex: Male
  Weight: 50 kg

DRUGS (7)
  1. ISENTRESS [Suspect]
     Indication: HIV INFECTION
     Route: 048
     Dates: start: 20091001
  2. BACTRIM [Suspect]
     Indication: PROPHYLAXIS
     Route: 048
  3. NORVIR [Concomitant]
     Indication: HIV INFECTION
     Route: 048
     Dates: start: 20091001
  4. PREZISTA [Concomitant]
     Indication: HIV INFECTION
     Route: 048
     Dates: start: 20091001
  5. ETRAVIRINE [Concomitant]
     Indication: HIV INFECTION
     Route: 048
     Dates: start: 20091001
  6. EMTRICITABINE AND TENOFOVIR DISOPROXIL FUMARATE [Concomitant]
     Route: 065
     Dates: start: 20091001
  7. IRFEN [Suspect]
     Indication: PAIN
     Route: 048
     Dates: start: 20100801, end: 20100831

REACTIONS (6)
  - AGRANULOCYTOSIS [None]
  - ANAEMIA [None]
  - DYSPHAGIA [None]
  - GRANULOCYTOPENIA [None]
  - NEUTROPENIA [None]
  - ORAL DISORDER [None]
